FAERS Safety Report 7432406-0 (Version None)
Quarter: 2011Q2

REPORT INFORMATION
  Report Type: 
  Country: None (occurrence: None)
  Receive Date: 20110422
  Receipt Date: 20110419
  Transmission Date: 20111010
  Serious: Yes (Death, Hospitalization, Other)
  Sender: FDA-Public Use
  Company Number: JP-PFIZER INC-2011029441

PATIENT
  Age: 67 Year
  Sex: Female
  Weight: 47 kg

DRUGS (12)
  1. SUTENT [Suspect]
     Indication: RENAL CELL CARCINOMA
     Dosage: UNK
     Route: 048
     Dates: start: 20100817, end: 20110204
  2. LIPITOR [Suspect]
     Indication: BLOOD CHOLESTEROL ABNORMAL
  3. LIPITOR [Suspect]
     Indication: HYPERCHOLESTEROLAEMIA
     Dosage: 1 TABLET, 1X/DAY
     Route: 048
     Dates: end: 20110207
  4. NITOROL R [Concomitant]
     Dosage: 1 DF, 2X/DAY
     Route: 048
     Dates: end: 20110207
  5. HERBESSER ^TANABE^ [Concomitant]
     Dosage: 30 MG, 3X/DAY
     Route: 048
  6. NU LOTAN [Concomitant]
     Dosage: 1 DF, 1X/DAY
     Route: 048
     Dates: end: 20110210
  7. LASIX [Concomitant]
     Indication: PLEURAL EFFUSION
     Dosage: 20 MG, 1X/DAY
     Route: 048
     Dates: start: 20101008
  8. THYRADIN S [Concomitant]
     Dosage: 25 UG, 1X/DAY
     Route: 048
     Dates: start: 20100831
  9. CODEINE PHOSPHATE [Concomitant]
     Indication: COUGH
     Dosage: 20 MG, 2X/DAY
     Route: 048
     Dates: start: 20100924
  10. MELILOT [Concomitant]
     Dosage: 2 DF, 2X/DAY
     Route: 048
     Dates: end: 20110207
  11. CLOTIAZEPAM [Concomitant]
     Dosage: UNK, 3X/DAY
     Route: 048
     Dates: end: 20110207
  12. ALDACTONE [Concomitant]
     Indication: PLEURAL EFFUSION
     Dosage: 25 MG, 1X/DAY
     Route: 048
     Dates: start: 20101008

REACTIONS (4)
  - DISEASE PROGRESSION [None]
  - RENAL CELL CARCINOMA [None]
  - RHABDOMYOLYSIS [None]
  - METASTASES TO LUNG [None]
